FAERS Safety Report 14900981 (Version 1)
Quarter: 2018Q2

REPORT INFORMATION
  Report Type: Spontaneous
  Country: US (occurrence: US)
  Receive Date: 20180428
  Receipt Date: 20180428
  Transmission Date: 20180711
  Serious: No
  Sender: FDA-Public Use
  Company Number: None

PATIENT
  Age: 51 Year
  Weight: 68.4 kg

DRUGS (1)
  1. FLONASE [Suspect]
     Active Substance: FLUTICASONE PROPIONATE
     Indication: EAR PAIN
     Dosage: ?          QUANTITY:1 SPRAY(S);?
     Route: 055
     Dates: start: 20180225, end: 20180428

REACTIONS (4)
  - Anxiety [None]
  - Feeling abnormal [None]
  - Anger [None]
  - Feeling guilty [None]

NARRATIVE: CASE EVENT DATE: 20180228
